FAERS Safety Report 10884056 (Version 1)
Quarter: 2015Q1

REPORT INFORMATION
  Report Type: Report from Study
  Country: PT (occurrence: PT)
  Receive Date: 20150304
  Receipt Date: 20150304
  Transmission Date: 20150721
  Serious: Yes (Other)
  Sender: FDA-Public Use
  Company Number: PT-ABBVIE-15K-130-1353485-00

PATIENT
  Age: 76 Year
  Sex: Female

DRUGS (4)
  1. FLUDEX [Concomitant]
     Active Substance: INDAPAMIDE
     Indication: HYPERTENSION
     Route: 048
  2. HUMIRA [Suspect]
     Active Substance: ADALIMUMAB
     Indication: RHEUMATOID ARTHRITIS
     Dosage: WEEK 0
     Route: 065
     Dates: start: 20140506, end: 20140506
  3. HUMIRA [Suspect]
     Active Substance: ADALIMUMAB
     Dosage: WEEK 2
     Route: 065
     Dates: start: 20140520, end: 20140520
  4. HUMIRA [Suspect]
     Active Substance: ADALIMUMAB
     Route: 065
     Dates: start: 20140603, end: 201408

REACTIONS (3)
  - Dermatitis allergic [Recovering/Resolving]
  - Allergic oedema [Recovered/Resolved]
  - Generalised erythema [Recovered/Resolved]

NARRATIVE: CASE EVENT DATE: 201408
